FAERS Safety Report 15575013 (Version 1)
Quarter: 2018Q4

REPORT INFORMATION
  Report Type: Spontaneous
  Country: US (occurrence: US)
  Receive Date: 20181101
  Receipt Date: 20181101
  Transmission Date: 20190205
  Serious: Yes (Other)
  Sender: FDA-Public Use
  Company Number: US-SA-2018SA299977

PATIENT
  Sex: Female
  Weight: 102 kg

DRUGS (10)
  1. MULTAQ [Concomitant]
     Active Substance: DRONEDARONE
  2. LIPITOR [Concomitant]
     Active Substance: ATORVASTATIN CALCIUM
  3. BENZONATATE. [Concomitant]
     Active Substance: BENZONATATE
  4. OXYCODONE [Concomitant]
     Active Substance: OXYCODONE
  5. HYDRALAZINE [Concomitant]
     Active Substance: HYDRALAZINE HYDROCHLORIDE
  6. HYZAAR [Concomitant]
     Active Substance: HYDROCHLOROTHIAZIDE\LOSARTAN POTASSIUM
  7. SYNTHROID [Concomitant]
     Active Substance: LEVOTHYROXINE SODIUM
  8. POTASSIUM [Concomitant]
     Active Substance: POTASSIUM
  9. HYDROCODONE [Concomitant]
     Active Substance: HYDROCODONE
  10. THYROGEN [Suspect]
     Active Substance: THYROTROPIN ALFA
     Indication: THYROID CANCER
     Dosage: 0.9 MG, QD
     Route: 030

REACTIONS (1)
  - Metastases to lung [Unknown]
